FAERS Safety Report 7383562-4 (Version None)
Quarter: 2011Q1

REPORT INFORMATION
  Report Type: 
  Country: None (occurrence: None)
  Receive Date: 20110325
  Receipt Date: 20110325
  Transmission Date: 20110831
  Serious: Yes (Hospitalization)
  Sender: FDA-Public Use
  Company Number: None

PATIENT
  Age: 71 Year
  Sex: Female

DRUGS (2)
  1. PROPANOLOL HCL ER CAPS 60MG ACTAVIS [Suspect]
     Indication: PALPITATIONS
     Dosage: TAKE 1 CAPSULE DAILY PAST 11 YEARS
  2. PROPANOLOL HCL ER CAPS 60MG ACTAVIS [Suspect]
     Indication: TACHYCARDIA
     Dosage: TAKE 1 CAPSULE DAILY PAST 11 YEARS

REACTIONS (4)
  - PRODUCT SUBSTITUTION ISSUE [None]
  - TACHYCARDIA [None]
  - CONDITION AGGRAVATED [None]
  - PALPITATIONS [None]
